FAERS Safety Report 9586645 (Version 3)
Quarter: 2013Q4

REPORT INFORMATION
  Report Type: Spontaneous
  Country: NL (occurrence: NL)
  Receive Date: 20131003
  Receipt Date: 20131121
  Transmission Date: 20140711
  Serious: Yes (Hospitalization, Other)
  Sender: FDA-Public Use
  Company Number: NL-ALEXION PHARMACEUTICALS INC.-A201302501

PATIENT
  Age: 62 Year
  Sex: Female
  Weight: 63 kg

DRUGS (8)
  1. SOLIRIS 300MG [Suspect]
     Indication: PAROXYSMAL NOCTURNAL HAEMOGLOBINURIA
     Dosage: 600 MG, QW
     Route: 042
     Dates: start: 20051019
  2. SOLIRIS 300MG [Suspect]
     Dosage: 900 MG, Q2W
     Route: 042
  3. SOLIRIS 300MG [Suspect]
     Dosage: 1200 MG, Q2W
     Route: 042
     Dates: start: 20131022
  4. ACENOCOUMAROL [Concomitant]
     Dosage: UNK
  5. PREDNISONE [Concomitant]
     Indication: OSTEOARTHRITIS
     Dosage: 5 MG, QD
     Dates: start: 200612
  6. PREDNISONE [Concomitant]
     Dosage: 2.5 MG, QD
  7. DICLOFENAC [Concomitant]
     Dosage: 75 MG, QD 1-2 TIMES
     Dates: start: 200604
  8. HYDROXYCHLOROQUINE [Concomitant]
     Dosage: 200 MG, QD
     Dates: start: 20100410

REACTIONS (8)
  - Meningitis viral [Recovering/Resolving]
  - Grand mal convulsion [Unknown]
  - Cerebral thrombosis [Unknown]
  - Cerebral ischaemia [Unknown]
  - Serum ferritin increased [Not Recovered/Not Resolved]
  - Haemoglobin decreased [Unknown]
  - Arrhythmia [Unknown]
  - Incorrect dose administered [Not Recovered/Not Resolved]
